FAERS Safety Report 6522324-4 (Version None)
Quarter: 2009Q4

REPORT INFORMATION
  Report Type: 
  Country: None (occurrence: None)
  Receive Date: 20091230
  Receipt Date: 20091222
  Transmission Date: 20100525
  Serious: Yes (Other)
  Sender: FDA-Public Use
  Company Number: B0618506A

PATIENT
  Age: 12 Year
  Sex: Female

DRUGS (3)
  1. RELENZA [Suspect]
     Indication: INFLUENZA
     Route: 055
     Dates: start: 20091204, end: 20091205
  2. MEPTIN AIR [Concomitant]
     Indication: ASTHMA
     Route: 055
     Dates: start: 20090519
  3. HUSCODE [Concomitant]
     Route: 048
     Dates: start: 20090519

REACTIONS (1)
  - ASTHMA [None]
